FAERS Safety Report 18136054 (Version 1)
Quarter: 2020Q3

REPORT INFORMATION
  Report Type: Report from Study
  Country: None (occurrence: RU)
  Receive Date: 20200811
  Receipt Date: 20200811
  Transmission Date: 20201103
  Serious: Yes (Other)
  Sender: FDA-Public Use
  Company Number: RU-ABBVIE-19K-251-3134568-00

PATIENT

DRUGS (7)
  1. APIXABAN [Suspect]
     Active Substance: APIXABAN
     Indication: ATRIAL FIBRILLATION
     Route: 065
  2. CLOPIDOGREL [Concomitant]
     Active Substance: CLOPIDOGREL BISULFATE
     Indication: THROMBOSIS
  3. IBRUTINIB [Suspect]
     Active Substance: IBRUTINIB
     Indication: CHRONIC LYMPHOCYTIC LEUKAEMIA
     Route: 048
  4. RIVAROXABAN [Suspect]
     Active Substance: RIVAROXABAN
     Indication: ATRIAL FIBRILLATION
     Route: 065
  5. DABIGATRAN [Suspect]
     Active Substance: DABIGATRAN
     Indication: ATRIAL FIBRILLATION
     Route: 065
  6. ASPRIN [Concomitant]
     Active Substance: ASPIRIN
     Indication: THROMBOSIS
  7. RIVAROXABAN [Suspect]
     Active Substance: RIVAROXABAN
     Route: 065

REACTIONS (9)
  - Haemorrhage [Unknown]
  - Haematoma [Unknown]
  - Atrial fibrillation [Unknown]
  - Gingival bleeding [Unknown]
  - Haematuria [Unknown]
  - Scleral haemorrhage [Unknown]
  - Petechiae [Unknown]
  - Hyphaema [Unknown]
  - Epistaxis [Unknown]
